FAERS Safety Report 9944282 (Version 1)
Quarter: 2014Q1

REPORT INFORMATION
  Report Type: Spontaneous
  Country: US (occurrence: US)
  Receive Date: 20140303
  Receipt Date: 20140303
  Transmission Date: 20141002
  Serious: No
  Sender: FDA-Public Use
  Company Number: US-ABBVIE-13P-163-1052059-00

PATIENT
  Age: 62 Year
  Sex: Female
  Weight: 70.37 kg

DRUGS (23)
  1. HUMIRA [Suspect]
     Indication: RHEUMATOID ARTHRITIS
     Dates: start: 20130214
  2. ALLEGRA [Concomitant]
     Indication: SEASONAL ALLERGY
  3. METHOTREXATE [Concomitant]
     Indication: RHEUMATOID ARTHRITIS
  4. VITAMIN B12 [Concomitant]
     Indication: PERNICIOUS ANAEMIA
     Route: 050
  5. JANUVIA [Concomitant]
     Indication: DIABETES MELLITUS
  6. AMBIEN [Concomitant]
     Indication: INSOMNIA
  7. METFORMIN [Concomitant]
     Indication: DIABETES MELLITUS
  8. SIMVASTATIN [Concomitant]
     Indication: BLOOD CHOLESTEROL
  9. OMEPRAZOLE [Concomitant]
     Indication: GASTROOESOPHAGEAL REFLUX DISEASE
  10. PAROXETINE [Concomitant]
     Indication: DEPRESSION
  11. SPIRONOLACTONE [Concomitant]
     Indication: BLOOD PRESSURE
  12. CARVEDILOL [Concomitant]
     Indication: CARDIAC DISORDER
  13. VENLAFAXINE [Concomitant]
     Indication: DEPRESSION
  14. FOLIC ACID [Concomitant]
     Indication: POLYMEDICATION
  15. VITAMIN C [Concomitant]
     Indication: PRODUCT USED FOR UNKNOWN INDICATION
  16. AMLODIPINE [Concomitant]
     Indication: BLOOD PRESSURE
  17. GLIPIZIDE [Concomitant]
     Indication: DIABETES MELLITUS
  18. VITAMIN E [Concomitant]
     Indication: PRODUCT USED FOR UNKNOWN INDICATION
  19. HYDROCODONE [Concomitant]
     Indication: PAIN
  20. ASPIRIN [Concomitant]
     Indication: CARDIAC DISORDER
  21. MAGNESIUM [Concomitant]
     Indication: PRODUCT USED FOR UNKNOWN INDICATION
  22. CALCIUM [Concomitant]
     Indication: PRODUCT USED FOR UNKNOWN INDICATION
  23. FISH OIL [Concomitant]
     Indication: PRODUCT USED FOR UNKNOWN INDICATION

REACTIONS (1)
  - Injection site pain [Recovered/Resolved]
